FAERS Safety Report 10744506 (Version 1)
Quarter: 2015Q1

REPORT INFORMATION
  Report Type: Spontaneous
  Country: US (occurrence: None)
  Receive Date: 20150126
  Receipt Date: 20150126
  Transmission Date: 20150721
  Serious: Yes (Other)
  Sender: FDA-Public Use
  Company Number: COL_18968_2015

PATIENT
  Sex: Male

DRUGS (1)
  1. SOFTSOAP BODYWASH HONEYSUCKLE + ORANGE PEEL [Suspect]
     Active Substance: COSMETICS
     Indication: PRODUCT USED FOR UNKNOWN INDICATION
     Route: 061

REACTIONS (4)
  - Peripheral swelling [None]
  - Impaired work ability [None]
  - Urticaria [None]
  - Rash pruritic [None]
